FAERS Safety Report 7243178-7 (Version None)
Quarter: 2011Q1

REPORT INFORMATION
  Report Type: 
  Country: None (occurrence: None)
  Receive Date: 20110125
  Receipt Date: 20110117
  Transmission Date: 20110831
  Serious: Yes (Other)
  Sender: FDA-Public Use
  Company Number: US-PFIZER INC-2011011175

PATIENT
  Sex: Female
  Weight: 95.238 kg

DRUGS (3)
  1. VICODIN [Concomitant]
     Indication: COMPLEX REGIONAL PAIN SYNDROME
     Dosage: 500 MG, 3X/DAY AS NEEDED
  2. CYCLOBENZAPRINE [Concomitant]
     Indication: COMPLEX REGIONAL PAIN SYNDROME
     Dosage: UNK
  3. LYRICA [Suspect]
     Indication: COMPLEX REGIONAL PAIN SYNDROME
     Dosage: 300 MG, 2X/DAY
     Dates: start: 20090101, end: 20110114

REACTIONS (1)
  - WITHDRAWAL SYNDROME [None]
